FAERS Safety Report 17507210 (Version 1)
Quarter: 2020Q1

REPORT INFORMATION
  Report Type: Spontaneous
  Country: US (occurrence: US)
  Receive Date: 20200305
  Receipt Date: 20200305
  Transmission Date: 20200409
  Serious: No
  Sender: FDA-Public Use
  Company Number: US-ROCHE-2363818

PATIENT
  Sex: Female

DRUGS (11)
  1. ELMIRON [Concomitant]
     Active Substance: PENTOSAN POLYSULFATE SODIUM
  2. PREDNISONE. [Concomitant]
     Active Substance: PREDNISONE
  3. FLOVENT HFA [Concomitant]
     Active Substance: FLUTICASONE PROPIONATE
  4. BENLYSTA [Concomitant]
     Active Substance: BELIMUMAB
  5. POTASSIUM [Concomitant]
     Active Substance: POTASSIUM
  6. TROSPIUM CHLORIDE. [Concomitant]
     Active Substance: TROSPIUM CHLORIDE
  7. HYDROXYCHLOROQUINE SULFATE. [Concomitant]
     Active Substance: HYDROXYCHLOROQUINE SULFATE
  8. XOLAIR [Suspect]
     Active Substance: OMALIZUMAB
     Indication: SYSTEMIC LUPUS ERYTHEMATOSUS
     Dosage: 150 MG VIAL
     Route: 058
     Dates: start: 201709
  9. DICLOFENAC [Concomitant]
     Active Substance: DICLOFENAC
  10. LEFLUNOMIDE. [Concomitant]
     Active Substance: LEFLUNOMIDE
  11. LEVOTHYROXINE SODIUM. [Concomitant]
     Active Substance: LEVOTHYROXINE SODIUM

REACTIONS (3)
  - Off label use [Unknown]
  - Intentional product use issue [Unknown]
  - No adverse event [Unknown]
